FAERS Safety Report 13447039 (Version 2)
Quarter: 2017Q2

REPORT INFORMATION
  Report Type: Spontaneous
  Country: US (occurrence: IT)
  Receive Date: 20170417
  Receipt Date: 20170512
  Transmission Date: 20170830
  Serious: No
  Sender: FDA-Public Use
  Company Number: US-PFIZER INC-2017159206

PATIENT
  Age: 64 Year
  Sex: Male

DRUGS (8)
  1. LISINOPRIL. [Concomitant]
     Active Substance: LISINOPRIL
     Dosage: UNK
  2. WARFARIN SODIUM. [Concomitant]
     Active Substance: WARFARIN SODIUM
     Dosage: UNK
  3. AZITHROMYCIN ANHYDROUS. [Concomitant]
     Active Substance: AZITHROMYCIN ANHYDROUS
     Dosage: UNK
  4. MYCOBUTIN [Suspect]
     Active Substance: RIFABUTIN
     Dosage: 150 MG, 1X/DAY
     Dates: start: 20170423
  5. ACETAMINOPHEN. [Concomitant]
     Active Substance: ACETAMINOPHEN
     Dosage: UNK
  6. MYCOBUTIN [Suspect]
     Active Substance: RIFABUTIN
     Indication: LUNG INFECTION
     Dosage: 150 MG, 1X/DAY
     Dates: start: 20161010, end: 20170204
  7. METOPROLOL. [Concomitant]
     Active Substance: METOPROLOL
     Dosage: UNK
  8. ISONIAZID. [Concomitant]
     Active Substance: ISONIAZID
     Dosage: UNK

REACTIONS (1)
  - Excessive cerumen production [Unknown]
